FAERS Safety Report 10236054 (Version 4)
Quarter: 2014Q4

REPORT INFORMATION
  Report Type: Spontaneous
  Country: IT (occurrence: IT)
  Receive Date: 20140613
  Receipt Date: 20141125
  Transmission Date: 20150528
  Serious: Yes (Other)
  Sender: FDA-Public Use
  Company Number: IT-SHIRE-IT201402840

PATIENT
  Age: 38 Year
  Sex: Male

DRUGS (6)
  1. 476 (MESALAZINE/MESALAMINE) [Suspect]
     Active Substance: MESALAMINE
     Dosage: 3.2 G, 1X/DAY:QD
     Route: 065
     Dates: start: 2009, end: 201104
  2. ASACOL [Suspect]
     Active Substance: MESALAMINE
     Dosage: 3.2 G, OTHER (DAILY, UNKNOWN FREQUENCY AND G CAPSULES)
  3. PENTACOL [Suspect]
     Active Substance: MESALAMINE
     Indication: COLITIS ULCERATIVE
     Dosage: UNK, UNKNOWN
     Route: 065
     Dates: start: 2010, end: 2011
  4. ANTIHYPERTENSIVES [Concomitant]
     Active Substance: UNSPECIFIED INGREDIENT
     Indication: HYPERTENSION
     Dosage: UNK, UNKNOWN
     Route: 065
  5. 476 (MESALAZINE/MESALAMINE) [Suspect]
     Active Substance: MESALAMINE
     Indication: COLITIS ULCERATIVE
     Dosage: 2.4 G, 1X/DAY:QD
     Route: 065
     Dates: start: 2005, end: 2009
  6. ASACOL [Suspect]
     Active Substance: MESALAMINE
     Indication: COLITIS ULCERATIVE
     Dosage: UNK UNK, OTHER(800 CPS. FOR A RCU WITH MAINTENANCE DOSE OF 2.4G/DAY)
     Route: 065
     Dates: start: 2005, end: 201104

REACTIONS (2)
  - Blood creatine increased [Unknown]
  - Chronic kidney disease [Unknown]

NARRATIVE: CASE EVENT DATE: 201012
